FAERS Safety Report 12248687 (Version 1)
Quarter: 2016Q2

REPORT INFORMATION
  Report Type: Spontaneous
  Country: US (occurrence: US)
  Receive Date: 20160408
  Receipt Date: 20160408
  Transmission Date: 20160815
  Serious: No
  Sender: FDA-Public Use
  Company Number: US-PFIZER INC-2016194659

PATIENT
  Age: 8 Month
  Sex: Female

DRUGS (1)
  1. XELJANZ [Suspect]
     Active Substance: TOFACITINIB CITRATE
     Dosage: TAB 5MG

REACTIONS (2)
  - Drug administered to patient of inappropriate age [Unknown]
  - Nausea [Unknown]

NARRATIVE: CASE EVENT DATE: 20160401
